FAERS Safety Report 16157878 (Version 1)
Quarter: 2019Q2

REPORT INFORMATION
  Report Type: Spontaneous
  Country: US (occurrence: US)
  Receive Date: 20190403
  Receipt Date: 20190403
  Transmission Date: 20190711
  Serious: Yes (Hospitalization)
  Sender: FDA-Public Use
  Company Number: None

PATIENT
  Age: 5 Year
  Sex: Male
  Weight: 16.65 kg

DRUGS (1)
  1. ALLERGENIC EXTRACTS [Suspect]
     Active Substance: ALLERGENIC EXTRACTS
     Indication: SEASONAL ALLERGY
     Dosage: ?          QUANTITY:1 INJECTION;OTHER FREQUENCY:WEEKLY;OTHER ROUTE:SUBCUTANEOUS INJECTION?
     Dates: start: 20181112, end: 20190113

REACTIONS (7)
  - Serum sickness [None]
  - Suspected product contamination [None]
  - Injection site infection [None]
  - Injection site mass [None]
  - Injection site vesicles [None]
  - Injection site erythema [None]
  - Injection site pustule [None]

NARRATIVE: CASE EVENT DATE: 20181211
